FAERS Safety Report 16873749 (Version 1)
Quarter: 2019Q4

REPORT INFORMATION
  Report Type: Spontaneous
  Country: CA (occurrence: CA)
  Receive Date: 20191001
  Receipt Date: 20191001
  Transmission Date: 20200122
  Serious: Yes (Other)
  Sender: FDA-Public Use
  Company Number: CA-BECTON DICKINSON-2019BDN00346

PATIENT

DRUGS (2)
  1. PEEL-AWAY INTRODUCER SET [Suspect]
     Active Substance: DEVICE
  2. CHLORAPREP WITH TINT [Suspect]
     Active Substance: CHLORHEXIDINE GLUCONATE\ISOPROPYL ALCOHOL
     Indication: INFECTION PROPHYLAXIS
     Dosage: UNK
     Route: 061
     Dates: start: 20190816, end: 20190816

REACTIONS (5)
  - Application site pruritus [Unknown]
  - Application site ulcer [Unknown]
  - Application site irritation [Unknown]
  - Application site vesicles [Unknown]
  - Application site rash [Unknown]

NARRATIVE: CASE EVENT DATE: 20190816
